FAERS Safety Report 9269712 (Version 1)
Quarter: 2013Q2

REPORT INFORMATION
  Report Type: Spontaneous
  Country: ES (occurrence: ES)
  Receive Date: 20130503
  Receipt Date: 20130503
  Transmission Date: 20140414
  Serious: Yes (Hospitalization)
  Sender: FDA-Public Use
  Company Number: ES-BAYER-2013-052238

PATIENT
  Age: 65 Year
  Sex: Male
  Weight: 72 kg

DRUGS (8)
  1. BAYCIP [Suspect]
     Indication: ANTIBIOTIC PROPHYLAXIS
     Dosage: UNK
     Dates: start: 20130118
  2. AMBISOME [Suspect]
     Indication: INFECTION PROPHYLAXIS
     Dosage: 5 MG/KG,CYCLICAL
     Route: 042
     Dates: start: 20130128, end: 20130131
  3. AMBISOME [Suspect]
     Indication: FUNGAL INFECTION
  4. COTRIMOXAZOLE RATIOPHARM [Concomitant]
     Dosage: UNK
     Dates: start: 20130118
  5. INSULIN PORCINE [Concomitant]
  6. OMEPRAZOLE [Concomitant]
     Dosage: UNK
     Dates: start: 20130117
  7. POTASSIUM [Concomitant]
     Dosage: UNK
     Dates: start: 20130206
  8. ISONIAZIDE [Concomitant]
     Dosage: UNK
     Dates: start: 20130215

REACTIONS (1)
  - Renal tubular necrosis [Not Recovered/Not Resolved]
